FAERS Safety Report 11306315 (Version 2)
Quarter: 2015Q4

REPORT INFORMATION
  Report Type: Spontaneous
  Country: DK (occurrence: GB)
  Receive Date: 20150723
  Receipt Date: 20151116
  Transmission Date: 20160304
  Serious: Yes (Other)
  Sender: FDA-Public Use
  Company Number: GB-FRI-1000078313

PATIENT
  Age: 40 Year
  Sex: Female

DRUGS (1)
  1. CITALOPRAM [Suspect]
     Active Substance: CITALOPRAM HYDROBROMIDE
     Indication: PRODUCT USED FOR UNKNOWN INDICATION
     Route: 048
     Dates: end: 201310

REACTIONS (1)
  - Optic ischaemic neuropathy [Recovered/Resolved with Sequelae]

NARRATIVE: CASE EVENT DATE: 201306
